FAERS Safety Report 21768366 (Version 1)
Quarter: 2022Q4

REPORT INFORMATION
  Report Type: Spontaneous
  Country: US (occurrence: US)
  Receive Date: 20221222
  Receipt Date: 20221222
  Transmission Date: 20230112
  Serious: Yes (Death)
  Sender: FDA-Public Use
  Company Number: US-HQ SPECIALTY-US-2022INT000203

PATIENT

DRUGS (4)
  1. CISPLATIN [Suspect]
     Active Substance: CISPLATIN
     Indication: Hepatoblastoma
     Dosage: 100 MG/M2 PER DOSE OR 3.3 MG/KG PER DOSE FOR {10 KG, 6 HOURS DAY 1
     Route: 042
  2. FLUOROURACIL [Suspect]
     Active Substance: FLUOROURACIL
     Indication: Hepatoblastoma
     Dosage: 600 MG/M2 PER DOSE OR 20 MG/KG PER DOSE FOR {10 KG, DAY 2
     Route: 042
  3. VINCRISTINE [Suspect]
     Active Substance: VINCRISTINE
     Indication: Hepatoblastoma
     Dosage: 1.5 MG/M2 /D, 2- MG MAXIMUM DOSE, OR 0.05 MG/KG/D, ON DAYS 2, 9, AND 16
     Route: 042
  4. DOXORUBICIN [Suspect]
     Active Substance: DOXORUBICIN
     Indication: Hepatoblastoma
     Dosage: 30 MG/M2 PER DOSE OR 1 MG/KG PER DOSE FOR {10 KG, ON DAY 1 AND 2
     Route: 042

REACTIONS (1)
  - Death [Fatal]
